FAERS Safety Report 4775030-0 (Version None)
Quarter: 2005Q3

REPORT INFORMATION
  Report Type: 
  Country: None (occurrence: None)
  Receive Date: 20050920
  Receipt Date: 20050909
  Transmission Date: 20060218
  Serious: Yes (Hospitalization)
  Sender: FDA-Public Use
  Company Number: 2005093689

PATIENT
  Age: 74 Year
  Sex: Female

DRUGS (2)
  1. BEXTRA [Suspect]
     Indication: ARTHRALGIA
     Dosage: 40 MG, INTERVAL, ORAL
     Route: 048
     Dates: start: 20050401
  2. OMEPRAZOLE [Concomitant]

REACTIONS (1)
  - ABDOMINAL PAIN UPPER [None]
